FAERS Safety Report 9100953 (Version 1)
Quarter: 2013Q1

REPORT INFORMATION
  Report Type: Spontaneous
  Country: US (occurrence: None)
  Receive Date: 20130220
  Receipt Date: 20130220
  Transmission Date: 20140127
  Serious: Yes (Hospitalization)
  Sender: FDA-Public Use
  Company Number: None

PATIENT
  Age: 49 Year
  Sex: Female
  Weight: 149.23 kg

DRUGS (2)
  1. NAPROXEN 500 MG FRONT ID G 32, BACK ID 500 [Suspect]
     Indication: TENDON INJURY
     Dosage: ONE TABLET  TWICE DAILY  PO?5 DAYS?07/16/2012  --  07/20/2012
     Route: 048
     Dates: start: 20120716, end: 20120720
  2. LISINOPRIL [Concomitant]

REACTIONS (5)
  - Hypertension [None]
  - Vaginal haemorrhage [None]
  - Hepatic steatosis [None]
  - Renal cyst [None]
  - Hepatic cyst [None]
